FAERS Safety Report 12511281 (Version 2)
Quarter: 2017Q1

REPORT INFORMATION
  Report Type: Spontaneous
  Country: US (occurrence: US)
  Receive Date: 20160629
  Receipt Date: 20170216
  Transmission Date: 20170428
  Serious: Yes (Other)
  Sender: FDA-Public Use
  Company Number: US-ALLERGAN-1658261US

PATIENT
  Age: 74 Year
  Sex: Male

DRUGS (4)
  1. LUMIGAN [Suspect]
     Active Substance: BIMATOPROST
     Indication: GLAUCOMA
  2. LUMIGAN [Suspect]
     Active Substance: BIMATOPROST
     Indication: OPEN ANGLE GLAUCOMA
     Dosage: UNK
     Route: 047
     Dates: start: 201008
  3. ELIQUIS [Concomitant]
     Active Substance: APIXABAN
     Indication: PRODUCT USED FOR UNKNOWN INDICATION
     Route: 048
  4. COSOPT [Concomitant]
     Active Substance: DORZOLAMIDE HYDROCHLORIDE\TIMOLOL MALEATE
     Indication: PRODUCT USED FOR UNKNOWN INDICATION
     Dosage: UNK
     Route: 047

REACTIONS (5)
  - Glaucoma [Unknown]
  - Dementia [Recovered/Resolved]
  - Hypertension [Unknown]
  - Thrombosis [Recovered/Resolved]
  - Diabetes mellitus [Unknown]
